FAERS Safety Report 6335356-6 (Version None)
Quarter: 2009Q3

REPORT INFORMATION
  Report Type: 
  Country: None (occurrence: None)
  Receive Date: 20090831
  Receipt Date: 20090819
  Transmission Date: 20100115
  Serious: Yes (Hospitalization, Other)
  Sender: FDA-Public Use
  Company Number: US-ELI_LILLY_AND_COMPANY-US200907006493

PATIENT
  Sex: Female
  Weight: 79.819 kg

DRUGS (13)
  1. CYMBALTA [Suspect]
     Indication: DEPRESSION
     Dosage: 60 MG, 2/D
     Route: 048
     Dates: start: 20071106
  2. FORTEO [Suspect]
     Indication: OSTEOPOROSIS
     Dosage: 20 UG, DAILY (1/D)
     Route: 058
     Dates: start: 20080418
  3. PLAQUENIL [Concomitant]
     Dosage: 200 MG, 2/D
     Route: 048
  4. MORPHINE [Concomitant]
     Dosage: 15 MG, 2/D
  5. LYRICA [Concomitant]
     Dosage: 100 MG, 3/D
     Route: 048
  6. DICLOFEN [Concomitant]
     Dosage: 50 MG, 3/D
     Route: 048
  7. NASACORT [Concomitant]
     Dosage: 1 D/F, DAILY (1/D)
     Route: 045
  8. CALCIUM CARBONATE W/VITAMIN D /00944201/ [Concomitant]
     Dosage: 1200 MG, DAILY (1/D)
  9. LOVAZA [Concomitant]
     Dosage: 1 D/F, DAILY (1/D)
  10. MULTI-VITAMIN [Concomitant]
     Dosage: 1 D/F, DAILY (1/D)
  11. DOCUSATE SODIUM [Concomitant]
     Indication: FAECES HARD
     Dosage: 1 D/F, DAILY (1/D)
  12. IMITREX [Concomitant]
     Indication: HEADACHE
     Dosage: 100 MG, AS NEEDED
     Route: 048
  13. AMBIEN [Concomitant]
     Indication: SLEEP DISORDER
     Dosage: 10 MG, DAILY (1/D)
     Route: 048

REACTIONS (9)
  - ACCIDENT [None]
  - CARPAL TUNNEL SYNDROME [None]
  - FALL [None]
  - IMPAIRED DRIVING ABILITY [None]
  - IMPAIRED HEALING [None]
  - MONARTHRITIS [None]
  - OSTEOPOROSIS [None]
  - PELVIC FRACTURE [None]
  - UPPER LIMB FRACTURE [None]
